FAERS Safety Report 21403165 (Version 1)
Quarter: 2022Q4

REPORT INFORMATION
  Report Type: Spontaneous
  Country: US (occurrence: US)
  Receive Date: 20221003
  Receipt Date: 20221003
  Transmission Date: 20230112
  Serious: No
  Sender: FDA-Public Use
  Company Number: None

PATIENT
  Age: 83 Year
  Sex: Female

DRUGS (1)
  1. VASCEPA [Suspect]
     Active Substance: ICOSAPENT ETHYL
     Indication: Hypertriglyceridaemia
     Route: 048

REACTIONS (4)
  - Nausea [Unknown]
  - Product taste abnormal [Unknown]
  - Dysgeusia [Unknown]
  - Product odour abnormal [Unknown]
